FAERS Safety Report 4979643-2 (Version None)
Quarter: 2006Q1

REPORT INFORMATION
  Report Type: 
  Country: None (occurrence: None)
  Receive Date: 20060227
  Receipt Date: 20050907
  Transmission Date: 20060701
  Serious: Yes (Hospitalization)
  Sender: FDA-Public Use
  Company Number: DSA_26959_2005

PATIENT
  Age: 67 Year
  Sex: Female

DRUGS (3)
  1. VASOTEC [Suspect]
     Indication: HYPERTENSION
     Dosage: 5 MG Q DAY; FEW YEARS
  2. ELAVIL [Concomitant]
  3. SYNTHROID [Concomitant]

REACTIONS (2)
  - HYPERSENSITIVITY [None]
  - PHARYNGEAL OEDEMA [None]
